FAERS Safety Report 11234382 (Version 2)
Quarter: 2015Q3

REPORT INFORMATION
  Report Type: Spontaneous
  Country: BR (occurrence: BR)
  Receive Date: 20150702
  Receipt Date: 20150721
  Transmission Date: 20151125
  Serious: Yes (Hospitalization, Other)
  Sender: FDA-Public Use
  Company Number: BR-JNJFOC-20150621435

PATIENT
  Age: 60 Year
  Sex: Male

DRUGS (2)
  1. STELARA [Suspect]
     Active Substance: USTEKINUMAB
     Indication: PSORIASIS
     Route: 058
  2. PENICILLIN [Suspect]
     Active Substance: PENICILLIN
     Indication: TOOTH INFECTION
     Route: 065

REACTIONS (6)
  - Dermatitis exfoliative [Unknown]
  - Tooth infection [Recovering/Resolving]
  - Toxic epidermal necrolysis [Recovering/Resolving]
  - Joint stiffness [Unknown]
  - Musculoskeletal stiffness [Unknown]
  - Pneumonia [Unknown]

NARRATIVE: CASE EVENT DATE: 20150620
